FAERS Safety Report 10365181 (Version 1)
Quarter: 2014Q3

REPORT INFORMATION
  Report Type: Spontaneous
  Country: US (occurrence: US)
  Receive Date: 20140806
  Receipt Date: 20140806
  Transmission Date: 20150326
  Serious: Yes (Other)
  Sender: FDA-Public Use
  Company Number: PHHY2014US095602

PATIENT
  Age: 89 Year
  Sex: Female

DRUGS (2)
  1. CARBOPLATIN. [Suspect]
     Active Substance: CARBOPLATIN
     Indication: SMALL CELL CARCINOMA
  2. ETOPOSIDE. [Suspect]
     Active Substance: ETOPOSIDE
     Indication: SMALL CELL CARCINOMA

REACTIONS (4)
  - Renal failure acute [Recovered/Resolved]
  - Anaemia [Recovered/Resolved]
  - Drug effect incomplete [Unknown]
  - Fatigue [Recovered/Resolved]
